FAERS Safety Report 8837662 (Version 1)
Quarter: 2012Q4

REPORT INFORMATION
  Report Type: 
  Country: IT (occurrence: IT)
  Receive Date: 20121012
  Receipt Date: 20121012
  Transmission Date: 20130627
  Serious: Yes (Death, Hospitalization)
  Sender: FDA-Public Use
  Company Number: IT-PERRIGO-12IT008606

PATIENT
  Age: 51 Year
  Sex: Male

DRUGS (1)
  1. IBUPROFEN RX 400 MG 373 [Suspect]
     Indication: INTENTIONAL OVERDOSE
     Dosage: 12 grams (estimated), single
     Route: 048

REACTIONS (5)
  - Intentional overdose [Fatal]
  - Coma [Fatal]
  - Respiratory depression [Fatal]
  - Hypotension [Fatal]
  - Metabolic acidosis [Fatal]
